FAERS Safety Report 12620751 (Version 2)
Quarter: 2016Q3

REPORT INFORMATION
  Report Type: Spontaneous
  Country: FR (occurrence: FR)
  Receive Date: 20160804
  Receipt Date: 20160908
  Transmission Date: 20161109
  Serious: Yes (Life-Threatening)
  Sender: FDA-Public Use
  Company Number: FR-ROCHE-1808122

PATIENT
  Age: 14 Year
  Sex: Female
  Weight: 44 kg

DRUGS (6)
  1. RITALIN [Suspect]
     Active Substance: METHYLPHENIDATE HYDROCHLORIDE
     Indication: PRODUCT USED FOR UNKNOWN INDICATION
     Route: 048
     Dates: start: 20160607, end: 20160607
  2. VALIUM [Suspect]
     Active Substance: DIAZEPAM
     Indication: PRODUCT USED FOR UNKNOWN INDICATION
     Dosage: ADJUSTABLE DOSE: 5 MG THREE TIMES
     Route: 048
     Dates: end: 20160607
  3. TERCIAN [Concomitant]
     Active Substance: CYAMEMAZINE
     Route: 048
  4. TERCIAN [Interacting]
     Active Substance: CYAMEMAZINE
     Indication: PRODUCT USED FOR UNKNOWN INDICATION
     Route: 030
     Dates: start: 20160607, end: 20160607
  5. PROZAC [Interacting]
     Active Substance: FLUOXETINE HYDROCHLORIDE
     Indication: PRODUCT USED FOR UNKNOWN INDICATION
     Route: 065
     Dates: start: 201605, end: 20160607
  6. ABILIFY [Concomitant]
     Active Substance: ARIPIPRAZOLE
     Dosage: TREATMENT DURATION:  5 MONTHS
     Route: 048

REACTIONS (3)
  - Drug interaction [Unknown]
  - Agitation [Recovered/Resolved]
  - Acute respiratory failure [Recovered/Resolved]

NARRATIVE: CASE EVENT DATE: 20160607
